FAERS Safety Report 18763312 (Version 1)
Quarter: 2021Q1

REPORT INFORMATION
  Report Type: Spontaneous
  Country: US (occurrence: US)
  Receive Date: 20210120
  Receipt Date: 20210120
  Transmission Date: 20210419
  Serious: Yes (Hospitalization)
  Sender: FDA-Public Use
  Company Number: None

PATIENT
  Age: 35 Year
  Sex: Male
  Weight: 72.1 kg

DRUGS (4)
  1. METHOTREXATE. [Suspect]
     Active Substance: METHOTREXATE
     Dates: end: 20201231
  2. CYCLOPHOSPHAMIDE. [Suspect]
     Active Substance: CYCLOPHOSPHAMIDE
     Dates: end: 20201224
  3. MERCAPTOPURINE. [Suspect]
     Active Substance: MERCAPTOPURINE
     Dates: end: 20210105
  4. CYTARABINE. [Suspect]
     Active Substance: CYTARABINE
     Dates: end: 20210103

REACTIONS (7)
  - Seizure [None]
  - Hypoaesthesia [None]
  - Focal dyscognitive seizures [None]
  - Meningitis aseptic [None]
  - Neurological symptom [None]
  - Muscular weakness [None]
  - Neutropenia [None]

NARRATIVE: CASE EVENT DATE: 20210104
